FAERS Safety Report 16449487 (Version 1)
Quarter: 2019Q2

REPORT INFORMATION
  Report Type: Spontaneous
  Country: US (occurrence: US)
  Receive Date: 20190619
  Receipt Date: 20190619
  Transmission Date: 20190711
  Serious: Yes (Death, Other)
  Sender: FDA-Public Use
  Company Number: US-ROCHE-2335538

PATIENT
  Age: 65 Year
  Sex: Male

DRUGS (6)
  1. CHLORAMBUCIL [Concomitant]
     Active Substance: CHLORAMBUCIL
  2. RITUXIMAB. [Suspect]
     Active Substance: RITUXIMAB
     Indication: CHRONIC LYMPHOCYTIC LEUKAEMIA
     Route: 041
  3. ATROPINE. [Concomitant]
     Active Substance: ATROPINE
     Route: 058
  4. ACETAMINOPHEN. [Concomitant]
     Active Substance: ACETAMINOPHEN
     Route: 048
  5. CLEMASTINE [Concomitant]
     Active Substance: CLEMASTINE
     Route: 042
  6. ALLOPURINOL. [Concomitant]
     Active Substance: ALLOPURINOL

REACTIONS (4)
  - Disseminated intravascular coagulation [Unknown]
  - Cardiopulmonary failure [Fatal]
  - Infusion related reaction [Recovered/Resolved]
  - Neoplasm [Fatal]
